FAERS Safety Report 17515181 (Version 1)
Quarter: 2020Q1

REPORT INFORMATION
  Report Type: Spontaneous
  Country: DE (occurrence: DE)
  Receive Date: 20200309
  Receipt Date: 20200309
  Transmission Date: 20200409
  Serious: Yes (Life-Threatening, Hospitalization)
  Sender: FDA-Public Use
  Company Number: DE-TEVA-2020-DE-1173392

PATIENT
  Age: 78 Year
  Sex: Male

DRUGS (13)
  1. METOPROLOL 47.5 MG RETARDTABLETTEN [Concomitant]
     Indication: CARDIAC FAILURE
  2. PANTOPRAZOL 20 MG [Concomitant]
     Active Substance: PANTOPRAZOLE SODIUM
     Indication: GASTRITIS PROPHYLAXIS
     Dosage: 40 MILLIGRAM DAILY; 2-0-0
     Route: 048
  3. KALINOR RETARD 600 MG [Concomitant]
     Indication: HYPOKALAEMIA
     Dosage: AS REQUIRED LAST DOSE 2-2-2
     Route: 048
  4. XARELTO [Concomitant]
     Active Substance: RIVAROXABAN
     Indication: THROMBOSIS PROPHYLAXIS
     Dosage: 5 MILLIGRAM DAILY; 1-0-1
     Route: 048
  5. HCT 25 MG [Concomitant]
     Active Substance: HYDROCHLOROTHIAZIDE
     Indication: HYPERTENSION
     Dosage: 12.5 MILLIGRAM DAILY; 0.5-0-0
     Route: 048
  6. METOPROLOL 47.5 MG RETARDTABLETTEN [Concomitant]
     Indication: HYPERTENSION
     Dosage: 95 MILLIGRAM DAILY; 1-0-1
     Route: 048
  7. PLAVIX [Concomitant]
     Active Substance: CLOPIDOGREL BISULFATE
     Indication: THROMBOSIS PROPHYLAXIS
     Dosage: 75 MILLIGRAM DAILY; 1-0-0
     Route: 048
  8. ATORVASTATIN 40 MG [Suspect]
     Active Substance: ATORVASTATIN
     Indication: HYPERCHOLESTEROLAEMIA
     Dosage: 40 MILLIGRAM DAILY; 0-0-1
     Route: 048
     Dates: start: 20191212, end: 20191217
  9. ASPIRIN. [Concomitant]
     Active Substance: ASPIRIN
     Indication: THROMBOSIS PROPHYLAXIS
     Dosage: 100 MILLIGRAM DAILY; 1-0-0
     Route: 048
  10. APROVEL 150 MG [Concomitant]
     Active Substance: IRBESARTAN
     Indication: HYPERTENSION
     Dosage: 300 MILLIGRAM DAILY; 1-0-1-0
     Route: 048
  11. DOXACOR 4 MG [Concomitant]
     Indication: HYPERTENSION
     Dosage: 6 MILLIGRAM DAILY; 0-1.5-0
     Route: 048
  12. LERCANIDIPIN [Concomitant]
     Active Substance: LERCANIDIPINE
     Indication: HYPERTENSION
     Dosage: 1-0-1
     Route: 048
  13. VELMETIA 50 MG /1000 MG [Concomitant]
     Indication: TYPE 2 DIABETES MELLITUS
     Dosage: 1-0-1-0; MONOTHERAPY WITH METFORMIN NOT ENOUGH
     Route: 048

REACTIONS (1)
  - Blood creatine phosphokinase increased [Recovering/Resolving]

NARRATIVE: CASE EVENT DATE: 20191217
